FAERS Safety Report 4593847-2 (Version None)
Quarter: 2005Q1

REPORT INFORMATION
  Report Type: 
  Country: None (occurrence: None)
  Receive Date: 20050301
  Receipt Date: 20050223
  Transmission Date: 20050727
  Serious: Yes (Other)
  Sender: FDA-Public Use
  Company Number: 200511606GDDC

PATIENT
  Sex: Male

DRUGS (1)
  1. DESMOPRESSIN [Suspect]
     Indication: ENURESIS
     Route: 048
     Dates: start: 20010101, end: 20030101

REACTIONS (2)
  - EMOTIONAL DISTRESS [None]
  - GYNAECOMASTIA [None]
